FAERS Safety Report 13091416 (Version 4)
Quarter: 2017Q1

REPORT INFORMATION
  Report Type: Spontaneous
  Country: US (occurrence: US)
  Receive Date: 20170106
  Receipt Date: 20170118
  Transmission Date: 20170428
  Serious: Yes (Life-Threatening, Hospitalization, Other)
  Sender: FDA-Public Use
  Company Number: US-CIPLA LTD.-2017US00408

PATIENT

DRUGS (2)
  1. SERTRALINE [Suspect]
     Active Substance: SERTRALINE HYDROCHLORIDE
     Indication: DEPRESSION
     Dosage: 50 MG, AT BED TIME
     Route: 065
  2. ESZOPICLONE. [Interacting]
     Active Substance: ESZOPICLONE
     Indication: DEPRESSION
     Dosage: 2 MG, AT BEDTIME
     Route: 065

REACTIONS (7)
  - Crying [Unknown]
  - Parasomnia [Unknown]
  - Restlessness [Unknown]
  - Agitation [Unknown]
  - Suicide attempt [Unknown]
  - Drug interaction [Unknown]
  - Paranoia [Unknown]
